FAERS Safety Report 4895647-2 (Version None)
Quarter: 2005Q4

REPORT INFORMATION
  Report Type: 
  Country: None (occurrence: None)
  Receive Date: 20051215
  Receipt Date: 20050503
  Transmission Date: 20060501
  Serious: Yes (Other)
  Sender: FDA-Public Use
  Company Number: 2005071714

PATIENT
  Age: 83 Year
  Sex: Female
  Weight: 60.3284 kg

DRUGS (8)
  1. BEXTRA [Suspect]
     Indication: INFLAMMATION
     Dosage: ORAL
     Route: 048
     Dates: start: 20050318, end: 20050319
  2. IRBESARTAN [Concomitant]
  3. FUROSEMIDE [Concomitant]
  4. METOPROLOL (METOPROLOL) [Concomitant]
  5. LEVOTHYROXINE SODIUM [Concomitant]
  6. CALCIUM CARBONATE (CALCIUM CARBONATE) [Concomitant]
  7. CENTRUM (MINERALS NOS, VITAMINS NOS) [Concomitant]
  8. POTASSIUM CHLORIDE [Concomitant]

REACTIONS (1)
  - HYPERTENSION [None]
